FAERS Safety Report 7538876-1 (Version None)
Quarter: 2011Q2

REPORT INFORMATION
  Report Type: 
  Country: None (occurrence: None)
  Receive Date: 20110524
  Receipt Date: 20110401
  Transmission Date: 20111010
  Serious: No
  Sender: FDA-Public Use
  Company Number: 030644

PATIENT
  Sex: Female

DRUGS (3)
  1. CIMZIA [Suspect]
     Indication: CROHN'S DISEASE
     Dosage: (200 MG 1X/2 WEEKS SUBCUTANEOUS), (SUBCUTANEOUS), (200 MG 1X/2 WEEKS SUBCUTANEOUS)
     Route: 058
     Dates: start: 20110331
  2. CIMZIA [Suspect]
     Indication: CROHN'S DISEASE
     Dosage: (200 MG 1X/2 WEEKS SUBCUTANEOUS), (SUBCUTANEOUS), (200 MG 1X/2 WEEKS SUBCUTANEOUS)
     Route: 058
     Dates: start: 20090305
  3. CIMZIA [Suspect]
     Indication: CROHN'S DISEASE
     Dosage: (200 MG 1X/2 WEEKS SUBCUTANEOUS), (SUBCUTANEOUS), (200 MG 1X/2 WEEKS SUBCUTANEOUS)
     Route: 058
     Dates: end: 20110218

REACTIONS (5)
  - DEHYDRATION [None]
  - VOMITING [None]
  - PYREXIA [None]
  - MYALGIA [None]
  - FATIGUE [None]
